FAERS Safety Report 9020544 (Version 1)
Quarter: 2013Q1

REPORT INFORMATION
  Report Type: Spontaneous
  Country: US (occurrence: US)
  Receive Date: 20130119
  Receipt Date: 20130119
  Transmission Date: 20140127
  Serious: No
  Sender: FDA-Public Use
  Company Number: US-ALLERGAN-1207590US

PATIENT
  Age: 50 Year
  Sex: Female

DRUGS (4)
  1. BOTOX COSMETIC [Suspect]
     Indication: SKIN WRINKLING
     Dosage: 66 UNITS, SINGLE
     Route: 030
     Dates: start: 20120529, end: 20120529
  2. BOTOX COSMETIC [Suspect]
     Route: 030
  3. SYNTHROID [Concomitant]
     Indication: HYPOTHYROIDISM
     Dosage: UNK
     Route: 048
  4. PROZAC                             /00724401/ [Concomitant]
     Indication: FATIGUE
     Dosage: UNK
     Route: 048

REACTIONS (3)
  - Trance [Unknown]
  - Drug ineffective [Unknown]
  - Therapeutic response decreased [Unknown]
